FAERS Safety Report 7403567-4 (Version None)
Quarter: 2011Q1

REPORT INFORMATION
  Report Type: 
  Country: None (occurrence: None)
  Receive Date: 20110330
  Receipt Date: 20110315
  Transmission Date: 20110831
  Serious: Yes (Hospitalization)
  Sender: FDA-Public Use
  Company Number: 2010US000091

PATIENT
  Age: 67 Year
  Sex: Male

DRUGS (8)
  1. VERSED [Concomitant]
  2. PEPCID [Concomitant]
  3. CEFOXITIN [Concomitant]
  4. HEPARIN [Concomitant]
  5. ACETAMINOPHEN [Concomitant]
  6. ENTEREG [Suspect]
     Indication: POSTOPERATIVE ILEUS
     Dosage: 12 MG; PO
     Route: 048
     Dates: start: 20100722, end: 20100729
  7. POTASSIUM [Concomitant]
  8. FENTANYL [Concomitant]

REACTIONS (6)
  - CHEST PAIN [None]
  - WOUND EVISCERATION [None]
  - RESPIRATORY FAILURE [None]
  - WOUND DEHISCENCE [None]
  - POST PROCEDURAL HAEMORRHAGE [None]
  - INTESTINAL PERFORATION [None]
